FAERS Safety Report 4279066-8 (Version None)
Quarter: 2004Q1

REPORT INFORMATION
  Report Type: 
  Country: None (occurrence: None)
  Receive Date: 20040126
  Receipt Date: 20040115
  Transmission Date: 20041129
  Serious: Yes (Hospitalization)
  Sender: FDA-Public Use
  Company Number: PHBS2004DE00965

PATIENT
  Age: 74 Year
  Sex: Male
  Weight: 90 kg

DRUGS (20)
  1. DICLOFENAC SODIUM [Suspect]
     Indication: PAIN
     Dosage: 100 MG, BID
     Route: 048
     Dates: start: 20020701
  2. ACERCOMP [Concomitant]
     Indication: HYPERTENSION
     Dosage: 0.5 DF/DAY
     Route: 048
     Dates: start: 20020701
  3. LASIX [Concomitant]
     Indication: HYPERTENSION
     Dosage: 20 MG/DAY
     Route: 048
     Dates: start: 20020701, end: 20020922
  4. LASIX [Concomitant]
     Dosage: 40 MG/DAY
     Route: 048
     Dates: start: 20020923
  5. PANTOZOL [Concomitant]
     Indication: PROPHYLAXIS
     Dosage: 40 MG, BID
     Route: 048
     Dates: start: 20020701
  6. FERRO-FOLSAN [Concomitant]
     Indication: ANAEMIA
     Dosage: 1 DF, BID
     Route: 048
     Dates: start: 20020701, end: 20020813
  7. CLEXANE [Concomitant]
     Dosage: 1 DF/DAY
     Dates: start: 20020701
  8. TRAMADOL HCL [Concomitant]
     Indication: PAIN
     Dosage: 100 MG, BID
     Route: 048
     Dates: start: 20020701
  9. DURAGESIC [Concomitant]
     Indication: PAIN
     Dosage: 25 UG, Q72H
     Route: 062
     Dates: start: 20020701
  10. TAVANIC [Concomitant]
     Indication: INFLAMMATION
     Dosage: 500 MG/DAY
     Route: 048
     Dates: start: 20020701
  11. OFLOXACIN [Concomitant]
     Dosage: 1 DF/DAY
  12. EMBOLEX [Concomitant]
     Dosage: 0.3 ML/DAY
     Dates: start: 20020921
  13. VOLTAREN [Suspect]
     Dosage: 75 MG, BID
     Route: 048
     Dates: start: 20020921, end: 20020924
  14. VIOXX [Concomitant]
     Dosage: 25 MG, BID
     Route: 048
     Dates: start: 20020921, end: 20020923
  15. NUTRIFLEX LIPID PERI [Concomitant]
     Dosage: 2500 ML/DAY
     Dates: start: 20020921, end: 20020923
  16. ACETYLCYSTEINE [Concomitant]
     Dosage: 200 MG, TID
  17. NYSTATIN [Concomitant]
     Indication: FUNGAL INFECTION
  18. CLINDAMYCIN [Concomitant]
     Dosage: 600 MG, QID
     Dates: start: 20020921, end: 20020923
  19. STAPHYLEX [Concomitant]
     Dosage: 2 G, TID
     Dates: start: 20020921, end: 20020921
  20. SIRDALUD [Concomitant]
     Indication: MUSCLE RELAXANT THERAPY
     Dosage: 2 MG, TID
     Route: 048
     Dates: start: 20020923, end: 20020924

REACTIONS (20)
  - ABSCESS [None]
  - ANOREXIA [None]
  - BLOOD ALBUMIN DECREASED [None]
  - BLOOD CHOLINESTERASE DECREASED [None]
  - BLOOD CREATININE INCREASED [None]
  - BLOOD GLUCOSE INCREASED [None]
  - BLOOD POTASSIUM DECREASED [None]
  - BLOOD UREA INCREASED [None]
  - BLOOD URIC ACID INCREASED [None]
  - C-REACTIVE PROTEIN INCREASED [None]
  - DECUBITUS ULCER [None]
  - FUNGAL INFECTION [None]
  - MALNUTRITION [None]
  - MEDICATION ERROR [None]
  - OLIGURIA [None]
  - RENAL FAILURE ACUTE [None]
  - SLEEP DISORDER [None]
  - STAPHYLOCOCCAL ABSCESS [None]
  - STAPHYLOCOCCAL INFECTION [None]
  - WHITE BLOOD CELL COUNT INCREASED [None]
